FAERS Safety Report 21334789 (Version 1)
Quarter: 2022Q3

REPORT INFORMATION
  Report Type: Spontaneous
  Country: FR (occurrence: FR)
  Receive Date: 20220914
  Receipt Date: 20220914
  Transmission Date: 20221027
  Serious: Yes (Life-Threatening, Other)
  Sender: FDA-Public Use
  Company Number: None

PATIENT
  Age: 59 Year
  Sex: Male
  Weight: 83 kg

DRUGS (4)
  1. ETOPOSIDE [Suspect]
     Active Substance: ETOPOSIDE
     Indication: T-cell lymphoma
     Dosage: 100 MILLIGRAM/SQ. METER, Q2W, 14 DAYS, 14-DAY CURE ON 04/05, 20/05, 03/06 AND 17/06
     Route: 042
     Dates: start: 20220504, end: 20220617
  2. DOXORUBICIN [Suspect]
     Active Substance: DOXORUBICIN
     Indication: T-cell lymphoma
     Dosage: 50 MILLIGRAM/SQ. METER, Q2W, 14 DAYS, CURES OF 14 DAYS ON 04/05, 20/05, 03/06 AND 17/06
     Route: 042
     Dates: start: 20220504, end: 20220617
  3. VINCRISTINE [Suspect]
     Active Substance: VINCRISTINE
     Indication: T-cell lymphoma
     Dosage: 1.4 MILLIGRAM/SQ. METER, Q2W, 14 DAYS, 14-DAY CURE ON 04/05, 20/05, 03/06 AND 17/06
     Route: 042
     Dates: start: 20220504, end: 20220617
  4. CYCLOPHOSPHAMIDE [Suspect]
     Active Substance: CYCLOPHOSPHAMIDE
     Indication: T-cell lymphoma
     Dosage: 750 MILLIGRAM/SQ. METER, Q2W, 14 DAYS CURES OF 14 DAYS ON 04/05, 20/05, 03/06 AND 17/06
     Route: 042
     Dates: start: 20220504, end: 20220617

REACTIONS (1)
  - Haemophagocytic lymphohistiocytosis [Unknown]
